FAERS Safety Report 7753160-9 (Version None)
Quarter: 2011Q3

REPORT INFORMATION
  Report Type: 
  Country: None (occurrence: None)
  Receive Date: 20110915
  Receipt Date: 20110912
  Transmission Date: 20111222
  Serious: Yes (Hospitalization, Other)
  Sender: FDA-Public Use
  Company Number: US-PFIZER INC-2011128578

PATIENT
  Sex: Female

DRUGS (7)
  1. CHANTIX [Suspect]
     Dosage: 0.5MG UP TO 1 MG PER DAY
     Dates: start: 20080609, end: 20080601
  2. EFFEXOR [Concomitant]
     Indication: DEPRESSION
     Dosage: UNK
     Dates: start: 20020101
  3. PLAVIX [Concomitant]
     Indication: CARDIAC DISORDER
     Dosage: UNK
     Dates: start: 20070101
  4. CHANTIX [Suspect]
     Indication: SMOKING CESSATION THERAPY
     Dosage: 0.5MG UP TO 1 MG PER DAY
     Dates: start: 20070107
  5. SIMVASTATIN [Concomitant]
     Indication: BLOOD CHOLESTEROL INCREASED
     Dosage: UNK
     Dates: start: 20070101
  6. TRAZODONE [Concomitant]
     Indication: DEPRESSION
     Dosage: UNK
     Dates: start: 20060101
  7. LORAZEPAM [Concomitant]
     Indication: DEPRESSION
     Dosage: UNK
     Dates: start: 20070101

REACTIONS (3)
  - INTENTIONAL OVERDOSE [None]
  - DEPRESSION [None]
  - SUICIDE ATTEMPT [None]
